FAERS Safety Report 24122081 (Version 1)
Quarter: 2024Q3

REPORT INFORMATION
  Report Type: Spontaneous
  Country: CN (occurrence: CN)
  Receive Date: 20240722
  Receipt Date: 20240722
  Transmission Date: 20241016
  Serious: Yes (Other)
  Sender: JOHNSON AND JOHNSON
  Company Number: CN-BAYER-2024A105619

PATIENT
  Age: 32 Year
  Sex: Male

DRUGS (5)
  1. RIVAROXABAN [Suspect]
     Active Substance: RIVAROXABAN
     Indication: Anticoagulant therapy
     Dosage: UNK
     Route: 048
     Dates: start: 2023
  2. PREDNISONE [Concomitant]
     Active Substance: PREDNISONE
     Indication: Immunosuppression
  3. CYCLOPHOSPHAMIDE [Concomitant]
     Active Substance: CYCLOPHOSPHAMIDE
     Indication: Immunosuppression
  4. HYDROXYCHLOROQUINE [Concomitant]
     Active Substance: HYDROXYCHLOROQUINE
     Indication: Immunosuppression
  5. BERAPROST [Concomitant]
     Active Substance: BERAPROST
     Indication: Vasodilation procedure

REACTIONS (2)
  - Skin haemorrhage [Unknown]
  - Extremity necrosis [Unknown]

NARRATIVE: CASE EVENT DATE: 20230101
